FAERS Safety Report 5362588-6 (Version None)
Quarter: 2007Q2

REPORT INFORMATION
  Report Type: 
  Country: None (occurrence: None)
  Receive Date: 20070619
  Receipt Date: 20070613
  Transmission Date: 20071010
  Serious: Yes (Death, Hospitalization)
  Sender: FDA-Public Use
  Company Number: JP-PFIZER INC-2007048725

PATIENT
  Age: 70 Year
  Sex: Male

DRUGS (1)
  1. SOLU-CORTEF [Suspect]
     Route: 042

REACTIONS (8)
  - LUNG ABSCESS [None]
  - NEPHRITIS INTERSTITIAL [None]
  - PULMONARY OEDEMA [None]
  - RENAL ABSCESS [None]
  - RENAL FAILURE ACUTE [None]
  - SEPSIS [None]
  - SPLENIC ABSCESS [None]
  - STAPHYLOCOCCAL INFECTION [None]
